FAERS Safety Report 16733511 (Version 1)
Quarter: 2019Q3

REPORT INFORMATION
  Report Type: Spontaneous
  Country: US (occurrence: US)
  Receive Date: 20190823
  Receipt Date: 20190823
  Transmission Date: 20191005
  Serious: Yes (Other)
  Sender: FDA-Public Use
  Company Number: US-GW PHARMA-201908USGW2969

PATIENT

DRUGS (2)
  1. EPIDIOLEX [Suspect]
     Active Substance: CANNABIDIOL
     Dosage: UNK (DOSE INCREASED)
     Route: 048
     Dates: start: 2019
  2. EPIDIOLEX [Suspect]
     Active Substance: CANNABIDIOL
     Indication: LENNOX-GASTAUT SYNDROME
     Dosage: 10.5 MG/KG, 270 MILLIGRAM, BID
     Route: 048
     Dates: start: 2019

REACTIONS (1)
  - Petit mal epilepsy [Unknown]

NARRATIVE: CASE EVENT DATE: 2019
